FAERS Safety Report 8292343-9 (Version None)
Quarter: 2012Q2

REPORT INFORMATION
  Report Type: 
  Country: None (occurrence: None)
  Receive Date: 20120417
  Receipt Date: 20110322
  Transmission Date: 20120825
  Serious: No
  Sender: FDA-Public Use
  Company Number: US-BAUSCH-2011BL001840

PATIENT
  Age: 89 Year
  Sex: Male

DRUGS (1)
  1. FLUNISOLIDE [Suspect]
     Indication: NASAL CONGESTION
     Route: 045
     Dates: start: 20100101

REACTIONS (1)
  - NASAL DISCOMFORT [None]
